FAERS Safety Report 14881947 (Version 1)
Quarter: 2018Q2

REPORT INFORMATION
  Report Type: Spontaneous
  Country: US (occurrence: US)
  Receive Date: 20180425
  Receipt Date: 20180425
  Transmission Date: 20180711
  Serious: Yes (Life-Threatening)
  Sender: FDA-Public Use
  Company Number: None

PATIENT
  Age: 67 Year
  Sex: Male

DRUGS (1)
  1. VANCOMYCIN [Suspect]
     Active Substance: VANCOMYCIN
     Dates: start: 20171128, end: 20171128

REACTIONS (2)
  - Anaphylactic reaction [None]
  - Pulse absent [None]

NARRATIVE: CASE EVENT DATE: 20171128
